FAERS Safety Report 4439660-8 (Version None)
Quarter: 2004Q3

REPORT INFORMATION
  Report Type: 
  Country: None (occurrence: None)
  Receive Date: 20040830
  Receipt Date: 20040822
  Transmission Date: 20050211
  Serious: Yes (Other)
  Sender: FDA-Public Use
  Company Number: 2004212743US

PATIENT
  Sex: Female

DRUGS (3)
  1. DIDREX [Suspect]
     Dates: start: 20030901, end: 20040521
  2. COGENTIN [Concomitant]
  3. CLONIDINE HCL [Concomitant]

REACTIONS (9)
  - DRUG DEPENDENCE [None]
  - DRUG WITHDRAWAL SYNDROME [None]
  - EPISTAXIS [None]
  - INTENTIONAL MISUSE [None]
  - MEDICATION ERROR [None]
  - NASAL DRYNESS [None]
  - NERVE INJURY [None]
  - SELF-MEDICATION [None]
  - VISION BLURRED [None]
